FAERS Safety Report 5926307-4 (Version None)
Quarter: 2008Q4

REPORT INFORMATION
  Report Type: 
  Country: None (occurrence: None)
  Receive Date: 20081022
  Receipt Date: 20081016
  Transmission Date: 20090506
  Serious: Yes (Hospitalization, Other)
  Sender: FDA-Public Use
  Company Number: BR-BAYER-200816049LA

PATIENT
  Age: 46 Year
  Sex: Female

DRUGS (1)
  1. BETAFERON [Suspect]
     Indication: MULTIPLE SCLEROSIS
     Route: 058
     Dates: start: 20040101

REACTIONS (6)
  - ENTERITIS INFECTIOUS [None]
  - HAEMATOCHEZIA [None]
  - INJECTION SITE RASH [None]
  - PYREXIA [None]
  - THROMBOSIS [None]
  - URINARY TRACT INFECTION [None]
